FAERS Safety Report 11851739 (Version 1)
Quarter: 2015Q4

REPORT INFORMATION
  Report Type: Report from Study
  Country: CA (occurrence: CA)
  Receive Date: 20151218
  Receipt Date: 20151218
  Transmission Date: 20160305
  Serious: Yes (Other)
  Sender: FDA-Public Use
  Company Number: CA-JNJFOC-20151012478

PATIENT
  Age: 36 Year
  Sex: Female
  Weight: 47.5 kg

DRUGS (12)
  1. REMICADE [Suspect]
     Active Substance: INFLIXIMAB
     Indication: CROHN^S DISEASE
     Route: 042
  2. REMICADE [Suspect]
     Active Substance: INFLIXIMAB
     Indication: CROHN^S DISEASE
     Route: 042
     Dates: start: 20151016
  3. REMICADE [Suspect]
     Active Substance: INFLIXIMAB
     Indication: CROHN^S DISEASE
     Route: 042
     Dates: start: 201508
  4. IMURAN [Concomitant]
     Active Substance: AZATHIOPRINE
     Route: 065
  5. PREDNISONE. [Concomitant]
     Active Substance: PREDNISONE
     Route: 065
  6. RABEPRAZOLE [Concomitant]
     Active Substance: RABEPRAZOLE
     Route: 065
  7. REMICADE [Suspect]
     Active Substance: INFLIXIMAB
     Indication: CROHN^S DISEASE
     Route: 042
     Dates: start: 20150510
  8. PHOSPHATE [Concomitant]
     Active Substance: UNSPECIFIED INGREDIENT
     Route: 065
  9. BENADRYL [Concomitant]
     Active Substance: DIPHENHYDRAMINE HYDROCHLORIDE
     Indication: PREMEDICATION
     Route: 065
     Dates: start: 20151016
  10. PARIET [Concomitant]
     Active Substance: RABEPRAZOLE SODIUM
     Route: 065
  11. REMICADE [Suspect]
     Active Substance: INFLIXIMAB
     Indication: CROHN^S DISEASE
     Dosage: OF 8TH WEEKS
     Route: 042
     Dates: start: 20150512
  12. PROZAC [Concomitant]
     Active Substance: FLUOXETINE HYDROCHLORIDE
     Route: 065

REACTIONS (3)
  - Systemic lupus erythematosus [Not Recovered/Not Resolved]
  - Pruritus [Recovered/Resolved]
  - Weight increased [Unknown]

NARRATIVE: CASE EVENT DATE: 201508
